FAERS Safety Report 7646400-8 (Version None)
Quarter: 2011Q3

REPORT INFORMATION
  Report Type: 
  Country: None (occurrence: None)
  Receive Date: 20110725
  Receipt Date: 20110707
  Transmission Date: 20111222
  Serious: Yes (Other)
  Sender: FDA-Public Use
  Company Number: JHP201100314

PATIENT
  Age: 34 Year
  Sex: Male

DRUGS (14)
  1. SUFENTANIL CITRATE [Concomitant]
  2. LASIX [Concomitant]
  3. PROPOFOL [Concomitant]
  4. NEOSTIGMINE (NEOSTIGMINE) [Concomitant]
  5. MIDAZOLAM HCL [Concomitant]
  6. ISOFLURANE [Concomitant]
  7. ROBINUL (GLYCOPYRRROIUM BROMIDE) [Concomitant]
  8. NITROUS OXIDE W/ OXYGEN [Concomitant]
  9. SUCCINYLCHOLINE CHLORIDE [Concomitant]
  10. FENTANYL [Concomitant]
  11. DANTROLENE SODIUM [Suspect]
     Indication: HYPERTHERMIA MALIGNANT
     Dosage: 1998 MG, TOTAL, INTRAVENOUS
     Route: 042
  12. MANNITOL [Suspect]
  13. VECURONIUM BROMIDE [Concomitant]
  14. LIDOCAINE (LIDOCAINE HYDROCHLORIDE) [Concomitant]

REACTIONS (4)
  - RESPIRATORY FAILURE [None]
  - PHLEBITIS [None]
  - PULMONARY OEDEMA [None]
  - MUSCULAR WEAKNESS [None]
